FAERS Safety Report 20313182 (Version 7)
Quarter: 2022Q2

REPORT INFORMATION
  Report Type: Other
  Country: IN (occurrence: None)
  Receive Date: 20220110
  Receipt Date: 20220602
  Transmission Date: 20220721
  Serious: Yes (Other)
  Sender: FDA-Public Use
  Company Number: IN-ROCHE-2995039

PATIENT
  Sex: Female

DRUGS (1)
  1. PERJETA [Suspect]
     Active Substance: PERTUZUMAB
     Indication: Breast cancer metastatic
     Route: 042

REACTIONS (5)
  - COVID-19 [Unknown]
  - Vomiting [Unknown]
  - Diarrhoea [Unknown]
  - Postmenopausal haemorrhage [Unknown]
  - Blood creatinine increased [Unknown]
